FAERS Safety Report 18103500 (Version 1)
Quarter: 2020Q3

REPORT INFORMATION
  Report Type: Spontaneous
  Country: US (occurrence: US)
  Receive Date: 20200803
  Receipt Date: 20200803
  Transmission Date: 20201103
  Serious: Yes (Other)
  Sender: FDA-Public Use
  Company Number: US-STRIDES ARCOLAB LIMITED-2020SP001050

PATIENT
  Age: 52 Year
  Sex: Female

DRUGS (3)
  1. RITUXIMAB. [Suspect]
     Active Substance: RITUXIMAB
     Indication: PEMPHIGUS
     Dosage: 2 CYCLES (1 G DAY 0 AND DAY 14)
     Route: 042
  2. MYCOPHENOLATE MOFETIL. [Suspect]
     Active Substance: MYCOPHENOLATE MOFETIL
     Indication: PEMPHIGUS
     Dosage: 2 GRAM PER DAY
     Route: 065
  3. RITUXIMAB. [Suspect]
     Active Substance: RITUXIMAB
     Dosage: 375 MILLIGRAM/SQ. METER WEEKLY FOR 4 WEEKS (3RD CYCLE)
     Route: 065

REACTIONS (5)
  - Cerebrospinal fluid leakage [Unknown]
  - Drug ineffective for unapproved indication [Unknown]
  - Cerebral toxoplasmosis [Unknown]
  - Rhinorrhoea [Unknown]
  - Encephalocele [Unknown]
